FAERS Safety Report 9314113 (Version 1)
Quarter: 2013Q2

REPORT INFORMATION
  Report Type: Spontaneous
  Country: TW (occurrence: None)
  Receive Date: 20130521
  Receipt Date: 20130521
  Transmission Date: 20140414
  Serious: Yes (Other)
  Sender: FDA-Public Use
  Company Number: 2013P1005829

PATIENT
  Age: 51 Year
  Sex: Male

DRUGS (3)
  1. SODIUM CHLORIDE [Suspect]
     Route: 042
  2. DOPAMINE [Concomitant]
  3. NOREPINEPHRINE [Concomitant]

REACTIONS (4)
  - Dermatitis bullous [None]
  - Pulse pressure decreased [None]
  - Post procedural complication [None]
  - Infusion site extravasation [None]
